FAERS Safety Report 18433642 (Version 1)
Quarter: 2020Q4

REPORT INFORMATION
  Report Type: Spontaneous
  Country: US (occurrence: US)
  Receive Date: 20201027
  Receipt Date: 20201027
  Transmission Date: 20210114
  Serious: Yes (Death, Other)
  Sender: FDA-Public Use
  Company Number: US-PURDUE-USA-2020-0171103

PATIENT
  Age: 53 Year
  Sex: Male
  Weight: 230 kg

DRUGS (27)
  1. OXYCODONE HCL TABLETS (RHODES 91-490) [Suspect]
     Active Substance: OXYCODONE HYDROCHLORIDE
     Dosage: 5 MG, 1 TABLET TWICE A DAY
     Route: 048
     Dates: start: 20030612
  2. OXYCODONE HCL TABLETS (RHODES 91-490) [Suspect]
     Active Substance: OXYCODONE HYDROCHLORIDE
     Dosage: 5 MG, 2 TABLETS TWICE A DAY
     Route: 048
     Dates: start: 20030922
  3. METHADONE HCL [Suspect]
     Active Substance: METHADONE HYDROCHLORIDE
     Dosage: 5 MG, 1 AND 1/2 TABLET (7.5 MG) EVERY 12 HS
     Route: 048
     Dates: start: 20050721
  4. MORPHINE SULFATE EXTENDED-RELEASE TABLETS (RHODES 74-769, 74-862) [Suspect]
     Active Substance: MORPHINE SULFATE
     Dosage: 15 MG, 1 TABLET EVERY 8 HS
     Route: 048
     Dates: start: 20041019
  5. OXYCODONE HCL TABLETS (RHODES 91-490) [Suspect]
     Active Substance: OXYCODONE HYDROCHLORIDE
     Indication: PAIN
     Dosage: 30 MG, 1/2 TABLET (15 MG) TWICE A DAY
     Route: 048
     Dates: start: 20040909
  6. OXYCODONE HCL TABLETS (RHODES 91-490) [Suspect]
     Active Substance: OXYCODONE HYDROCHLORIDE
     Dosage: 5 MG, 1 TABLET EVERY 6 HS
     Route: 048
     Dates: start: 20041230
  7. OXYCODONE HCL TABLETS (RHODES 91-490) [Suspect]
     Active Substance: OXYCODONE HYDROCHLORIDE
     Dosage: 5 MG, 1 TABLET
     Route: 048
     Dates: start: 20051130
  8. OXYCODONE HCL TABLETS (RHODES 91-490) [Suspect]
     Active Substance: OXYCODONE HYDROCHLORIDE
     Dosage: 30 MG, 1/2 TABLET 4 TIMES A DAY FOR SEVERE PAIN NOT RELIEVED BY METHADONE
     Route: 048
     Dates: start: 20041130
  9. ENALAPRIL MALEATE. [Concomitant]
     Active Substance: ENALAPRIL MALEATE
     Indication: PRODUCT USED FOR UNKNOWN INDICATION
     Dosage: 20 MG, DAILY
     Route: 048
     Dates: start: 20080620
  10. METFORMIN HYDROCHLORIDE. [Concomitant]
     Active Substance: METFORMIN HYDROCHLORIDE
     Indication: DIABETES MELLITUS
     Dosage: 1000 MG
     Route: 048
     Dates: start: 20071001
  11. OXYCODONE HCL TABLETS (RHODES 91-490) [Suspect]
     Active Substance: OXYCODONE HYDROCHLORIDE
     Dosage: 5 MG, 2 TABLETS THREE TIMES A DAY
     Route: 048
     Dates: start: 20040121
  12. OXYCONTIN [Suspect]
     Active Substance: OXYCODONE HYDROCHLORIDE
     Dosage: 10 MG, 1 TABLET EVERY 12 HOURS
     Route: 048
     Dates: start: 20060328
  13. METHADONE HCL [Suspect]
     Active Substance: METHADONE HYDROCHLORIDE
     Dosage: 5 MG, 1/2 TABLET (2.5 MG) EVERY 8 HS
     Route: 048
     Dates: start: 20050502
  14. INSULIN [Concomitant]
     Active Substance: INSULIN NOS
     Indication: PRODUCT USED FOR UNKNOWN INDICATION
     Dosage: 0.5ML/30G
     Route: 065
     Dates: start: 20070329
  15. MORPHINE SULFATE EXTENDED-RELEASE TABLETS (RHODES 74-769, 74-862) [Suspect]
     Active Substance: MORPHINE SULFATE
     Indication: PAIN
     Dosage: 30 MG, 1 TABLET EVERY 8 HS
     Route: 048
     Dates: start: 20051017
  16. MORPHINE SULFATE EXTENDED-RELEASE TABLETS (RHODES 74-769, 74-862) [Suspect]
     Active Substance: MORPHINE SULFATE
     Dosage: 30 MG, 1 TABLET TWICE A DAY
     Route: 048
     Dates: start: 20051212
  17. OXYCODONE HCL TABLETS (RHODES 91-490) [Suspect]
     Active Substance: OXYCODONE HYDROCHLORIDE
     Dosage: 30 MG, 1/2 TABLET
     Route: 048
     Dates: start: 20051212
  18. METHADONE HCL [Suspect]
     Active Substance: METHADONE HYDROCHLORIDE
     Indication: PAIN
     Dosage: 5 MG
     Route: 048
     Dates: start: 20080206
  19. METHADONE HCL [Suspect]
     Active Substance: METHADONE HYDROCHLORIDE
     Dosage: 5 MG, 1 TABLET EVERY 8 HS
     Route: 048
     Dates: start: 20050606
  20. IBUPROFEN. [Concomitant]
     Active Substance: IBUPROFEN
     Indication: PAIN
     Dosage: 5%, 1/2 TABLET EVERY 6 HS
     Route: 048
     Dates: start: 20041021
  21. OXYCODONE HCL TABLETS (RHODES 91-490) [Suspect]
     Active Substance: OXYCODONE HYDROCHLORIDE
     Dosage: 30 MG, 1/2 TABLET EVERY 8 HS
     Route: 048
     Dates: start: 20040921
  22. TREMADOL [Suspect]
     Active Substance: TRAMADOL HYDROCHLORIDE
     Dosage: 50 MG
     Route: 048
     Dates: start: 20060908
  23. FENTANYL. [Suspect]
     Active Substance: FENTANYL
     Indication: PAIN
     Dosage: 50 MCG/HR, 1 PATCH EVERY 3 DAYS
     Route: 065
     Dates: start: 20060313
  24. OXYCODONE HCL TABLETS (RHODES 91-490) [Suspect]
     Active Substance: OXYCODONE HYDROCHLORIDE
     Dosage: 5 MG, 1 TABLET EVERY 4 TO 6 HS
     Route: 048
     Dates: start: 20031231
  25. OXYCONTIN [Suspect]
     Active Substance: OXYCODONE HYDROCHLORIDE
     Indication: PRODUCT USED FOR UNKNOWN INDICATION
     Dosage: 20 MG, 1 TABLET EVERY 12 HOURS
     Route: 048
     Dates: start: 20060328
  26. TREMADOL [Suspect]
     Active Substance: TRAMADOL HYDROCHLORIDE
     Indication: PAIN
     Dosage: 50 MG
     Route: 048
     Dates: start: 20070329
  27. IBUPROFEN. [Concomitant]
     Active Substance: IBUPROFEN
     Dosage: 800 MG, 1 TABLET 3 TIMES PER DAY
     Route: 048
     Dates: start: 20041130

REACTIONS (3)
  - Toxicity to various agents [Fatal]
  - Aspiration of gastric residual [Fatal]
  - Drug dependence [Unknown]

NARRATIVE: CASE EVENT DATE: 20080731
